FAERS Safety Report 19417831 (Version 1)
Quarter: 2021Q2

REPORT INFORMATION
  Report Type: Spontaneous
  Country: US (occurrence: US)
  Receive Date: 20210615
  Receipt Date: 20210615
  Transmission Date: 20210717
  Serious: Yes (Other)
  Sender: FDA-Public Use
  Company Number: None

PATIENT
  Age: 71 Year
  Sex: Male
  Weight: 70.3 kg

DRUGS (1)
  1. INGREZZA [Suspect]
     Active Substance: VALBENAZINE
     Indication: DYSKINESIA
     Route: 048
     Dates: start: 20210603, end: 20210613

REACTIONS (5)
  - Constipation [None]
  - Abdominal pain upper [None]
  - Jaw disorder [None]
  - Oromandibular dystonia [None]
  - Condition aggravated [None]

NARRATIVE: CASE EVENT DATE: 20210609
